FAERS Safety Report 6613991-5 (Version None)
Quarter: 2010Q1

REPORT INFORMATION
  Report Type: 
  Country: None (occurrence: None)
  Receive Date: 20100304
  Receipt Date: 20100224
  Transmission Date: 20100710
  Serious: Yes (Life-Threatening, Hospitalization)
  Sender: FDA-Public Use
  Company Number: FR-KINGPHARMUSA00001-K201000213

PATIENT
  Age: 83 Year
  Sex: Female

DRUGS (8)
  1. ALTACE [Suspect]
     Indication: CARDIAC FAILURE
     Dosage: 5 MG, QD
     Route: 048
     Dates: end: 20091027
  2. SPIRONOLACTONE [Suspect]
     Dosage: 50 MG, QD
     Route: 048
     Dates: end: 20091027
  3. ATENOLOL [Suspect]
     Indication: ATRIAL FIBRILLATION
     Dosage: 50 MG, QD
     Route: 048
     Dates: end: 20091027
  4. DIGOXIN [Suspect]
     Indication: ATRIAL FIBRILLATION
     Dosage: 0.13 MG, QD
     Route: 048
     Dates: end: 20091027
  5. DALACIN [Suspect]
     Dosage: UNK
     Dates: end: 20091027
  6. BEHEPAN [Concomitant]
     Dosage: 1 MG, UNK
  7. MINDIAB [Concomitant]
     Dosage: 2.5 MG, UNK
  8. FURIX [Concomitant]
     Dosage: 40 MG, UNK

REACTIONS (10)
  - BLOOD PRESSURE DECREASED [None]
  - BRADYCARDIA [None]
  - CARDIOACTIVE DRUG LEVEL INCREASED [None]
  - DIARRHOEA [None]
  - GENERAL PHYSICAL CONDITION ABNORMAL [None]
  - HYPERKALAEMIA [None]
  - HYPOVOLAEMIA [None]
  - METABOLIC ACIDOSIS [None]
  - NAUSEA [None]
  - RENAL FAILURE [None]
